FAERS Safety Report 18107415 (Version 3)
Quarter: 2020Q4

REPORT INFORMATION
  Report Type: Report from Study
  Country: DE (occurrence: DE)
  Receive Date: 20200803
  Receipt Date: 20201030
  Transmission Date: 20210113
  Serious: Yes (Death, Hospitalization, Other)
  Sender: FDA-Public Use
  Company Number: DE-ASTRAZENECA-2020SE96971

PATIENT
  Sex: Female
  Weight: 60 kg

DRUGS (6)
  1. KISQALI [Suspect]
     Active Substance: RIBOCICLIB
     Indication: BREAST CANCER METASTATIC
     Dosage: 600 MG DAILY (SCHEMA 21 DAYS INTAKE, 7 DAYS PAUSE)
     Route: 048
     Dates: start: 20190515, end: 20191223
  2. METOCLOPRAMIDE. [Concomitant]
     Active Substance: METOCLOPRAMIDE
     Indication: BREAST CANCER METASTATIC
     Dosage: UNKNOWN
     Route: 065
  3. MORPHIN [Concomitant]
     Active Substance: MORPHINE
     Indication: BREAST CANCER METASTATIC
     Dosage: UNKNOWN
     Route: 065
  4. CANDESARTAN. [Concomitant]
     Active Substance: CANDESARTAN
     Indication: BREAST CANCER METASTATIC
     Dosage: UNKNOWN
     Route: 065
  5. KISQALI [Suspect]
     Active Substance: RIBOCICLIB
     Indication: BREAST CANCER METASTATIC
     Dosage: 600 MG DAILY (SCHEMA 21 DAYS INTAKE, 7 DAYS PAUSE)
     Route: 048
     Dates: start: 20200109, end: 20200703
  6. FULVESTRANT. [Suspect]
     Active Substance: FULVESTRANT
     Indication: BREAST CANCER METASTATIC
     Dosage: 500 MG, QD (EVERY 4 WEEKS)
     Route: 030
     Dates: start: 20190515, end: 20200623

REACTIONS (10)
  - General physical health deterioration [Fatal]
  - Metastases to liver [Fatal]
  - Hepatic failure [Fatal]
  - Fatigue [Unknown]
  - Chromaturia [Unknown]
  - Mental status changes [Unknown]
  - Anaemia [Not Recovered/Not Resolved]
  - Abdominal pain [Unknown]
  - Muscle atrophy [Unknown]
  - Jaundice [Fatal]

NARRATIVE: CASE EVENT DATE: 20200623
